FAERS Safety Report 21053856 (Version 2)
Quarter: 2022Q3

REPORT INFORMATION
  Report Type: Report from Study
  Country: US (occurrence: US)
  Receive Date: 20220707
  Receipt Date: 20220713
  Transmission Date: 20221027
  Serious: Yes (Other)
  Sender: FDA-Public Use
  Company Number: US-ABBVIE-22K-163-4457857-00

PATIENT
  Sex: Female

DRUGS (1)
  1. SYNTHROID [Suspect]
     Active Substance: LEVOTHYROXINE SODIUM
     Indication: Product used for unknown indication
     Dosage: KEPT INCREASING DOSE, ON IT FOR 61 YEARS
     Route: 048

REACTIONS (5)
  - Cardiac operation [Unknown]
  - Coronary artery bypass [Unknown]
  - Blood cholesterol increased [Unknown]
  - Adverse drug reaction [Unknown]
  - Polyp [Unknown]

NARRATIVE: CASE EVENT DATE: 20220101
